FAERS Safety Report 13676455 (Version 2)
Quarter: 2017Q3

REPORT INFORMATION
  Report Type: Spontaneous
  Country: US (occurrence: US)
  Receive Date: 20170622
  Receipt Date: 20170717
  Transmission Date: 20171127
  Serious: No
  Sender: FDA-Public Use
  Company Number: US-TEVA-779598ACC

PATIENT
  Sex: Female
  Weight: 82.17 kg

DRUGS (1)
  1. PARAGARD T 380A [Suspect]
     Active Substance: COPPER
     Indication: CONTRACEPTION
     Dates: start: 20150416, end: 20170515

REACTIONS (2)
  - Anaemia [Unknown]
  - Menorrhagia [Unknown]
